FAERS Safety Report 8188631-7 (Version None)
Quarter: 2012Q1

REPORT INFORMATION
  Report Type: 
  Country: None (occurrence: None)
  Receive Date: 20120306
  Receipt Date: 20120228
  Transmission Date: 20120608
  Serious: Yes (Hospitalization)
  Sender: FDA-Public Use
  Company Number: JP-ASTRAZENECA-2012SE14554

PATIENT

DRUGS (3)
  1. CHINES HERBAL MEDICINES [Suspect]
     Route: 065
  2. NEXIUM [Suspect]
     Route: 048
  3. PRAVASTATIN SODIUM [Suspect]
     Route: 065

REACTIONS (1)
  - LIVER DISORDER [None]
